APPROVED DRUG PRODUCT: URSODIOL
Active Ingredient: URSODIOL
Strength: 300MG
Dosage Form/Route: CAPSULE;ORAL
Application: A079082 | Product #001 | TE Code: AB
Applicant: LANNETT CO INC
Approved: Dec 15, 2008 | RLD: No | RS: No | Type: RX